FAERS Safety Report 9765179 (Version 1)
Quarter: 2013Q4

REPORT INFORMATION
  Report Type: Spontaneous
  Country: US (occurrence: None)
  Receive Date: 20131216
  Receipt Date: 20131216
  Transmission Date: 20140711
  Serious: Yes (Life-Threatening)
  Sender: FDA-Public Use
  Company Number: None

PATIENT
  Age: 74 Year
  Sex: Male
  Weight: 78.93 kg

DRUGS (1)
  1. CLINDAMYCIN [Suspect]
     Indication: EAR INFECTION
     Dosage: 1 PER DAY

REACTIONS (4)
  - Dyspepsia [None]
  - Dyspnoea [None]
  - Myocardial infarction [None]
  - Eating disorder [None]
